FAERS Safety Report 6157170-7 (Version None)
Quarter: 2009Q2

REPORT INFORMATION
  Report Type: 
  Country: None (occurrence: None)
  Receive Date: 20090413
  Receipt Date: 20090403
  Transmission Date: 20091009
  Serious: Yes (Death, Other)
  Sender: FDA-Public Use
  Company Number: 2007-01807

PATIENT
  Age: 60 Year
  Sex: Male
  Weight: 60 kg

DRUGS (54)
  1. VELCADE [Suspect]
     Indication: MULTIPLE MYELOMA
     Dosage: SEE IMAGE, INTRAVENOUS
     Route: 042
     Dates: start: 20070124, end: 20070203
  2. VELCADE [Suspect]
     Indication: MULTIPLE MYELOMA
     Dosage: SEE IMAGE, INTRAVENOUS
     Route: 042
     Dates: start: 20070302, end: 20070312
  3. VELCADE [Suspect]
     Indication: MULTIPLE MYELOMA
     Dosage: SEE IMAGE, INTRAVENOUS
     Route: 042
     Dates: start: 20070327, end: 20070406
  4. VELCADE [Suspect]
     Indication: MULTIPLE MYELOMA
     Dosage: SEE IMAGE, INTRAVENOUS
     Route: 042
     Dates: start: 20070515, end: 20070525
  5. VELCADE [Suspect]
     Indication: MULTIPLE MYELOMA
     Dosage: SEE IMAGE, INTRAVENOUS
     Route: 042
     Dates: start: 20070619, end: 20071004
  6. DEXAMETHASONE 4MG TAB [Concomitant]
  7. ALLOPURINOL [Concomitant]
  8. CALCIUM POLYSTYRENE SULFONATE (CALCIUM POLYSTYRENE SULFONATE) [Concomitant]
  9. BIOFERMIN (STREPTOCOCCUS FAECALIS, LACTOBACILLUS ACIDOPHILUS, BACILLUS [Concomitant]
  10. ACTONEL [Concomitant]
  11. PANTOSIN (PANTETHINE) [Concomitant]
  12. MAGNESIUM OXIDE (MAGNESIUM OXIDE) [Concomitant]
  13. SULFAMETHOXAZOLE AND TRIMETHOPRIM [Concomitant]
  14. DIFLUCAN [Concomitant]
  15. VITAMEDIN CAPSULE (PYRIDOXINE HYDROCHLORIDE, CYANOCOBALAMIN, BENFOTIAM [Concomitant]
  16. LASIX [Concomitant]
  17. TANNALBIN (ALBUMIN TANNATE) [Concomitant]
  18. LOPERAMIDE HCL [Concomitant]
  19. PRIMPERAN TAB [Concomitant]
  20. NAUZELIN (DOMPERIDONE) [Concomitant]
  21. OMEPRAZOLE [Concomitant]
  22. NOVAMIN (PROCHLORPERAZINE) [Concomitant]
  23. FLUCONAZOLE [Concomitant]
  24. ESPO (EPOETIN ALFA) [Concomitant]
  25. ROPION (FLURBIPROFEN AXETIL) [Concomitant]
  26. MEROPEN (MEROPENEM) [Concomitant]
  27. SOLU-CORTEF [Concomitant]
  28. PANTOL (DEXPANTHENOL) [Concomitant]
  29. HUMANT ANTI-D IMMUNGLOBULIN (IMMUNOGLOBULIN HUMAN ANTI-RH) [Concomitant]
  30. ISODINE (PROVIDONE-IODINE) [Concomitant]
  31. MAXIPIME [Concomitant]
  32. TARGOCID [Concomitant]
  33. TIENAM (IMIPENEM, CILASTATIN) [Concomitant]
  34. ADONA (CARBAZOCHROME SODIUM SULFONATE) [Concomitant]
  35. TRANSAMIN (TRANEXAMIC ACID) [Concomitant]
  36. AZULENE (AZULENE) [Concomitant]
  37. LEVOFLOXACIN [Concomitant]
  38. TARIVID OPHTHALMIC (OFLOXACIN) [Concomitant]
  39. LOXONIN (LOXOPROFEN SODIUM) [Concomitant]
  40. VIDARABINE [Concomitant]
  41. PENTAZOCINE LACTATE [Concomitant]
  42. ATARAX [Concomitant]
  43. ACYCLOVIR [Concomitant]
  44. TOFRANIL [Concomitant]
  45. VENOGLOBULIN-I [Concomitant]
  46. ALLOID (SODIUM ALGINATE) [Concomitant]
  47. NAUZELIN (DOMPERIDONE) [Concomitant]
  48. DEPAS (ETIZOLAM) [Concomitant]
  49. RED BLOOD CELLS [Concomitant]
  50. PLATELETS [Concomitant]
  51. KYTRIL [Concomitant]
  52. ATARAX [Concomitant]
  53. TAVEGYL (CLEMASTINE) [Concomitant]
  54. PURSENNID (SENNA LEAF) [Concomitant]

REACTIONS (4)
  - DISEASE PROGRESSION [None]
  - ILEUS [None]
  - ORTHOSTATIC HYPOTENSION [None]
  - PLATELET COUNT DECREASED [None]
